FAERS Safety Report 15908586 (Version 1)
Quarter: 2019Q1

REPORT INFORMATION
  Report Type: Spontaneous
  Country: US (occurrence: US)
  Receive Date: 20190204
  Receipt Date: 20190204
  Transmission Date: 20190417
  Serious: No
  Sender: FDA-Public Use
  Company Number: US-ABBVIE-18K-163-2227164-00

PATIENT
  Age: 50 Year
  Sex: Female

DRUGS (7)
  1. HUMIRA [Suspect]
     Active Substance: ADALIMUMAB
     Indication: PRODUCT USED FOR UNKNOWN INDICATION
     Route: 058
  2. GABAPENTIN. [Concomitant]
     Active Substance: GABAPENTIN
     Indication: FIBROMYALGIA
     Dates: start: 201701
  3. TOPIRAMATE. [Concomitant]
     Active Substance: TOPIRAMATE
     Indication: FIBROMYALGIA
     Dates: start: 201701
  4. XELJANZ XR [Suspect]
     Active Substance: TOFACITINIB CITRATE
     Indication: RHEUMATOID ARTHRITIS
     Route: 048
     Dates: start: 20171101
  5. METOPROLOL. [Concomitant]
     Active Substance: METOPROLOL
     Indication: PALPITATIONS
  6. GABAPENTIN. [Concomitant]
     Active Substance: GABAPENTIN
     Indication: FIBROMYALGIA
     Route: 048
     Dates: start: 201701
  7. METOPROLOL. [Concomitant]
     Active Substance: METOPROLOL
     Indication: HYPERTENSION
     Route: 048
     Dates: start: 2003

REACTIONS (6)
  - Influenza [Not Recovered/Not Resolved]
  - Rheumatoid arthritis [Unknown]
  - Cough [Not Recovered/Not Resolved]
  - Productive cough [Not Recovered/Not Resolved]
  - Rhinorrhoea [Not Recovered/Not Resolved]
  - Drug ineffective [Unknown]

NARRATIVE: CASE EVENT DATE: 20171224
